FAERS Safety Report 11213116 (Version 2)
Quarter: 2015Q3

REPORT INFORMATION
  Report Type: Spontaneous
  Country: US (occurrence: US)
  Receive Date: 20150623
  Receipt Date: 20150713
  Transmission Date: 20151125
  Serious: Yes (Life-Threatening)
  Sender: FDA-Public Use
  Company Number: US-ROXANE LABORATORIES, INC.-2015-RO-01052RO

PATIENT
  Sex: Female
  Weight: 55 kg

DRUGS (1)
  1. CODEINE [Suspect]
     Active Substance: CODEINE
     Indication: SPINAL FRACTURE
     Route: 065

REACTIONS (1)
  - Anaphylactic reaction [Recovered/Resolved]
